FAERS Safety Report 22250451 (Version 7)
Quarter: 2024Q1

REPORT INFORMATION
  Report Type: Spontaneous
  Country: BR (occurrence: BR)
  Receive Date: 20230425
  Receipt Date: 20240115
  Transmission Date: 20240410
  Serious: Yes (Other)
  Sender: FDA-Public Use
  Company Number: BR-BoehringerIngelheim-2023-BI-232538

PATIENT
  Age: 70 Year
  Sex: Male
  Weight: 63 kg

DRUGS (11)
  1. MICARDIS HCT [Suspect]
     Active Substance: HYDROCHLOROTHIAZIDE\TELMISARTAN
     Indication: Hypertension
     Dosage: MICARDIS HCT 80+12,5MG HALF A TABLET A DAY.
     Route: 048
     Dates: start: 2018
  2. MICARDIS HCT [Suspect]
     Active Substance: HYDROCHLOROTHIAZIDE\TELMISARTAN
     Dosage: THE PATIENT ALSO REPORTS THAT HE USES HALF A TABLET OF THE DRUG MICARDIS HCT AND IS USING IT SPORADI
  3. MICARDIS HCT [Suspect]
     Active Substance: HYDROCHLOROTHIAZIDE\TELMISARTAN
     Dosage: HE CONFIRMED THAT IN 2017, HE WAS ALREADY USING MICARDIS HCT
  4. ACTIVATED CHARCOAL [Suspect]
     Active Substance: ACTIVATED CHARCOAL
     Indication: Renal cancer
     Dosage: 1 TABLET IN THE MORNING.
     Route: 048
  5. OMEPRAZOLE [Concomitant]
     Active Substance: OMEPRAZOLE
     Indication: Drug therapy
     Route: 048
     Dates: start: 2021
  6. OMEPRAZOLE [Concomitant]
     Active Substance: OMEPRAZOLE
     Indication: Retching
  7. Razapina ODT [Concomitant]
     Indication: Prophylaxis
     Route: 048
     Dates: start: 2018, end: 2021
  8. ATORVASTATIN [Concomitant]
     Active Substance: ATORVASTATIN
     Indication: Drug therapy
     Route: 048
     Dates: start: 2022
  9. PURAN [Concomitant]
     Active Substance: LEVOTHYROXINE SODIUM
     Indication: Product used for unknown indication
     Dosage: 1 TABLET IN THE MORNING ON AN EMPTY STOMACH AT 6AM (DURING THE WEEK).
     Route: 048
     Dates: start: 2020
  10. PURAN [Concomitant]
     Active Substance: LEVOTHYROXINE SODIUM
     Dosage: SATURDAYS AND SUNDAYS.
     Route: 048
  11. Calcium carbonate + Calcium [Concomitant]
     Indication: Drug therapy
     Dosage: CALCIUM CARBONATE 1250MG + CALCIUM 500MG 1 TABLET A DAY.
     Route: 048
     Dates: start: 2023

REACTIONS (42)
  - Bladder cancer [Not Recovered/Not Resolved]
  - Metastases to lung [Not Recovered/Not Resolved]
  - Metastases to spine [Not Recovered/Not Resolved]
  - Metastases to bone [Not Recovered/Not Resolved]
  - Renal cancer [Recovered/Resolved]
  - Blood pressure abnormal [Recovered/Resolved]
  - Benign neoplasm of thyroid gland [Not Recovered/Not Resolved]
  - Hypertension [Not Recovered/Not Resolved]
  - Diarrhoea [Not Recovered/Not Resolved]
  - Retching [Not Recovered/Not Resolved]
  - Rash [Not Recovered/Not Resolved]
  - Inflammation of wound [Not Recovered/Not Resolved]
  - Dry skin [Not Recovered/Not Resolved]
  - Thrombosis [Recovered/Resolved]
  - Peripheral swelling [Recovered/Resolved]
  - Wrong technique in product usage process [Not Recovered/Not Resolved]
  - Malaise [Not Recovered/Not Resolved]
  - Wound secretion [Not Recovered/Not Resolved]
  - Single functional kidney [Recovered/Resolved]
  - Visual impairment [Not Recovered/Not Resolved]
  - Eye infection [Not Recovered/Not Resolved]
  - Cataract [Not Recovered/Not Resolved]
  - Chronic sinusitis [Not Recovered/Not Resolved]
  - Glomerular filtration rate decreased [Recovered/Resolved]
  - Visual impairment [Not Recovered/Not Resolved]
  - Eye inflammation [Recovered/Resolved]
  - Blood pressure abnormal [Recovered/Resolved]
  - Oropharyngeal pain [Not Recovered/Not Resolved]
  - Tonsillar erythema [Recovered/Resolved]
  - Chronic tonsillitis [Recovered/Resolved]
  - Gastrooesophageal reflux disease [Unknown]
  - Hypertension [Not Recovered/Not Resolved]
  - Nodule [Recovered/Resolved]
  - Hypotension [Not Recovered/Not Resolved]
  - Hypophagia [Recovered/Resolved]
  - Product physical issue [Unknown]
  - Malaise [Not Recovered/Not Resolved]
  - Vomiting [Recovered/Resolved]
  - Decreased appetite [Recovered/Resolved]
  - Wrong technique in product usage process [Unknown]
  - Intentional product use issue [Unknown]
  - Vitamin D deficiency [Unknown]

NARRATIVE: CASE EVENT DATE: 20170101
